FAERS Safety Report 19232992 (Version 1)
Quarter: 2021Q2

REPORT INFORMATION
  Report Type: Spontaneous
  Country: HU (occurrence: HU)
  Receive Date: 20210507
  Receipt Date: 20210507
  Transmission Date: 20210717
  Serious: Yes (Other)
  Sender: FDA-Public Use
  Company Number: HU-TEVA-2021-HU-1907659

PATIENT
  Age: 1 Year
  Sex: Female

DRUGS (1)
  1. VEGACILLIN [Suspect]
     Active Substance: PENICILLIN V
     Indication: PYELITIS
     Route: 048
     Dates: start: 1962, end: 1962

REACTIONS (2)
  - Dyspnoea [Recovered/Resolved]
  - Drug hypersensitivity [Recovered/Resolved]

NARRATIVE: CASE EVENT DATE: 1962
